FAERS Safety Report 4923633-2 (Version None)
Quarter: 2006Q1

REPORT INFORMATION
  Report Type: 
  Country: None (occurrence: None)
  Receive Date: 20060227
  Receipt Date: 20050315
  Transmission Date: 20060701
  Serious: Yes (Other)
  Sender: FDA-Public Use
  Company Number: US-MERCK-0503USA03215

PATIENT
  Age: 54 Year
  Sex: Male
  Weight: 111 kg

DRUGS (12)
  1. VIOXX [Suspect]
     Indication: ARTHRALGIA
     Route: 048
     Dates: start: 20001101, end: 20040501
  2. NAPROXEN [Concomitant]
     Route: 065
  3. FUROSEMIDE [Concomitant]
     Route: 065
  4. COREG [Concomitant]
     Route: 065
  5. ACTOS [Concomitant]
     Route: 065
  6. ZAROXOLYN [Concomitant]
     Route: 065
  7. ISORDIL [Concomitant]
     Route: 065
  8. INSULIN [Concomitant]
     Route: 051
  9. CEPHALEXIN [Concomitant]
     Route: 065
  10. ASPIRIN [Concomitant]
     Route: 065
  11. COLCHICINE [Concomitant]
     Route: 065
  12. KLOR-CON [Concomitant]
     Route: 048

REACTIONS (9)
  - CARDIAC DISORDER [None]
  - CARDIAC FAILURE [None]
  - CEREBROVASCULAR ACCIDENT [None]
  - CHEST PAIN [None]
  - HEPATOCELLULAR DAMAGE [None]
  - MYOCARDIAL INFARCTION [None]
  - RENAL DISORDER [None]
  - THROMBOSIS [None]
  - ULCER [None]
